FAERS Safety Report 8317604-6 (Version None)
Quarter: 2012Q2

REPORT INFORMATION
  Report Type: 
  Country: None (occurrence: None)
  Receive Date: 20120427
  Receipt Date: 20111130
  Transmission Date: 20120825
  Serious: No
  Sender: FDA-Public Use
  Company Number: US-GLAXOSMITHKLINE-A0956057A

PATIENT
  Age: 28 Year
  Sex: Female

DRUGS (2)
  1. NO CONCURRENT MEDICATION [Concomitant]
  2. ZOFRAN [Suspect]
     Indication: GASTROENTERITIS
     Dosage: 4MG SINGLE DOSE
     Route: 048
     Dates: start: 20111128, end: 20111128

REACTIONS (2)
  - HYPOAESTHESIA [None]
  - PARAESTHESIA [None]
